FAERS Safety Report 20535105 (Version 2)
Quarter: 2022Q1

REPORT INFORMATION
  Report Type: Spontaneous
  Country: PL (occurrence: None)
  Receive Date: 20220302
  Receipt Date: 20220310
  Transmission Date: 20220423
  Serious: Yes (Other)
  Sender: FDA-Public Use
  Company Number: 2022A083017

PATIENT
  Age: 40 Year
  Sex: Female

DRUGS (9)
  1. QUETIAPINE [Interacting]
     Active Substance: QUETIAPINE
     Indication: Depression
     Route: 048
  2. QUETIAPINE [Interacting]
     Active Substance: QUETIAPINE
     Indication: Depression
     Route: 048
  3. ATORVASTATIN [Interacting]
     Active Substance: ATORVASTATIN
     Indication: Dyslipidaemia
     Route: 065
  4. ATORVASTATIN [Interacting]
     Active Substance: ATORVASTATIN
     Indication: Dyslipidaemia
     Route: 065
  5. FLUCONAZOLE [Interacting]
     Active Substance: FLUCONAZOLE
     Indication: Vaginal discharge
     Dosage: 200 MG DAILY
     Route: 065
  6. CRANBERRY JUICE [Interacting]
     Active Substance: CRANBERRY JUICE
     Route: 065
  7. BIOTIN [Suspect]
     Active Substance: BIOTIN
     Indication: Alopecia
     Route: 065
  8. PAROXETINE [Concomitant]
     Active Substance: PAROXETINE
     Indication: Depression
     Dosage: 40 MBQ DAILY
     Route: 065
  9. PAROXETINE [Concomitant]
     Active Substance: PAROXETINE
     Indication: Depression
     Dosage: 20 MG DAILY
     Route: 065

REACTIONS (5)
  - Drug interaction [Recovered/Resolved]
  - Drug level increased [Recovered/Resolved]
  - Leukopenia [Recovered/Resolved]
  - Thrombocytopenia [Recovered/Resolved]
  - Hypothyroidism [Recovered/Resolved]
